FAERS Safety Report 22053935 (Version 2)
Quarter: 2023Q1

REPORT INFORMATION
  Report Type: Spontaneous
  Country: US (occurrence: US)
  Receive Date: 20230302
  Receipt Date: 20230306
  Transmission Date: 20230418
  Serious: No
  Sender: FDA-Public Use
  Company Number: US-PFIZER INC-PV202200081036

PATIENT
  Age: 85 Year
  Sex: Female

DRUGS (1)
  1. IBRANCE [Suspect]
     Active Substance: PALBOCICLIB
     Indication: Neoplasm malignant
     Dosage: 100 MG

REACTIONS (8)
  - White blood cell count decreased [Unknown]
  - Oropharyngeal discomfort [Unknown]
  - Malaise [Unknown]
  - Dysphonia [Unknown]
  - Alopecia [Unknown]
  - Onychomadesis [Unknown]
  - Vomiting [Unknown]
  - Gait disturbance [Unknown]
